FAERS Safety Report 9010547 (Version 1)
Quarter: 2013Q1

REPORT INFORMATION
  Report Type: Spontaneous
  Country: US (occurrence: US)
  Receive Date: 20130109
  Receipt Date: 20130109
  Transmission Date: 20140127
  Serious: No
  Sender: FDA-Public Use
  Company Number: US-ASTRAZENECA-2013SE00427

PATIENT
  Age: 50 Year
  Sex: Female

DRUGS (3)
  1. CRESTOR [Suspect]
     Route: 048
  2. ASA [Concomitant]
  3. LAVAZA [Concomitant]

REACTIONS (2)
  - Antinuclear antibody increased [Unknown]
  - Arthralgia [Unknown]
